FAERS Safety Report 6264090-6 (Version None)
Quarter: 2009Q3

REPORT INFORMATION
  Report Type: 
  Country: None (occurrence: None)
  Receive Date: 20090706
  Receipt Date: 20080827
  Transmission Date: 20100115
  Serious: Yes (Other)
  Sender: FDA-Public Use
  Company Number: 583289

PATIENT
  Sex: Male

DRUGS (10)
  1. CELLCEPT [Suspect]
     Indication: DEMYELINATING POLYNEUROPATHY
     Dates: start: 20040101
  2. NORTRIPTYLINE HCL [Suspect]
     Indication: ANALGESIA
     Dates: start: 20031001
  3. GABAPENTIN [Concomitant]
  4. CYCLOBENZAPRINE HYDROCHLORIDE [Concomitant]
  5. METFORMIN [Concomitant]
  6. GLYBURIDE [Concomitant]
  7. SIMVASTATIN [Concomitant]
  8. ATENOLOL [Concomitant]
  9. HYDROCHLOROTHIAZIDE [Concomitant]
  10. NOVOLIN (INSULIN HUMAN) [Concomitant]

REACTIONS (1)
  - DIABETES MELLITUS [None]
